FAERS Safety Report 18586592 (Version 2)
Quarter: 2020Q4

REPORT INFORMATION
  Report Type: Spontaneous
  Country: CH (occurrence: CH)
  Receive Date: 20201207
  Receipt Date: 20201223
  Transmission Date: 20210114
  Serious: No
  Sender: FDA-Public Use
  Company Number: ALC2020CH009565

PATIENT

DRUGS (3)
  1. LATANOPROST PFIZER [Concomitant]
     Active Substance: LATANOPROST
     Indication: INTRAOCULAR PRESSURE TEST
     Dosage: 1 DROP IN THE EVENING
     Route: 065
  2. SYSTANE ULTRA [Suspect]
     Active Substance: POLYETHYLENE GLYCOL 400\PROPYLENE GLYCOL
     Indication: DRY EYE
     Dosage: 1 DROP IN THE MORNING AND IN THE EVENING
     Route: 065
     Dates: start: 20201101, end: 20201108
  3. TIMOPTIC [Concomitant]
     Active Substance: TIMOLOL MALEATE
     Indication: INTRAOCULAR PRESSURE TEST
     Dosage: 1 DROP IN THE MORNING
     Route: 065

REACTIONS (4)
  - Intraocular pressure increased [Unknown]
  - Vision blurred [Recovered/Resolved]
  - Potentiating drug interaction [Recovered/Resolved]
  - Visual impairment [Recovered/Resolved]
